FAERS Safety Report 23028656 (Version 1)
Quarter: 2023Q4

REPORT INFORMATION
  Report Type: Spontaneous
  Country: US (occurrence: US)
  Receive Date: 20231004
  Receipt Date: 20231004
  Transmission Date: 20240110
  Serious: No
  Sender: FDA-Public Use
  Company Number: US-HORIZON THERAPEUTICS-HZN-2023-006652

PATIENT

DRUGS (4)
  1. KRYSTEXXA [Suspect]
     Active Substance: PEGLOTICASE
     Indication: Product used for unknown indication
     Dosage: UNK (TOOK IT FOR SIX MONTHS)
     Route: 065
     Dates: start: 202011
  2. IRON [Concomitant]
     Active Substance: IRON
     Indication: Joint swelling
  3. IRON [Concomitant]
     Active Substance: IRON
     Indication: Arthralgia
  4. IRON [Concomitant]
     Active Substance: IRON
     Indication: Peripheral swelling

REACTIONS (3)
  - Peripheral swelling [Not Recovered/Not Resolved]
  - Joint swelling [Not Recovered/Not Resolved]
  - Arthralgia [Not Recovered/Not Resolved]

NARRATIVE: CASE EVENT DATE: 20230830
